FAERS Safety Report 5707547-6 (Version None)
Quarter: 2008Q2

REPORT INFORMATION
  Report Type: 
  Country: None (occurrence: None)
  Receive Date: 20080411
  Receipt Date: 20061019
  Transmission Date: 20081010
  Serious: Yes (Other)
  Sender: FDA-Public Use
  Company Number: 8019645

PATIENT
  Age: 14 Year
  Sex: Female

DRUGS (1)
  1. METADATE ER [Suspect]
     Dates: start: 20060901

REACTIONS (1)
  - FACIAL PALSY [None]
